FAERS Safety Report 9310364 (Version 2)
Quarter: 2014Q2

REPORT INFORMATION
  Report Type: Spontaneous
  Country: IT (occurrence: IT)
  Receive Date: 20130527
  Receipt Date: 20140422
  Transmission Date: 20141212
  Serious: Yes (Life-Threatening, Hospitalization)
  Sender: FDA-Public Use
  Company Number: IT-BRISTOL-MYERS SQUIBB COMPANY-18923763

PATIENT
  Age: 46 Year
  Sex: Female

DRUGS (3)
  1. COUMADIN TABS 5 MG [Suspect]
     Indication: ANTICOAGULANT THERAPY
     Dosage: 1 DF: 1 UNIT;?LAST DOSE: 03-MAY-2013
     Route: 048
     Dates: start: 20130101
  2. ROFERON [Concomitant]
     Dosage: 1 DF: 3 MIU/0.5ML INJECTION SOLUTION
     Route: 058
  3. INDERAL [Concomitant]
     Dosage: 40 MG TABS
     Route: 048

REACTIONS (5)
  - Shock haemorrhagic [Unknown]
  - Upper gastrointestinal haemorrhage [Unknown]
  - Haematemesis [Unknown]
  - Presyncope [Unknown]
  - Abdominal pain [Unknown]
